FAERS Safety Report 8129464-7 (Version None)
Quarter: 2012Q1

REPORT INFORMATION
  Report Type: 
  Country: None (occurrence: None)
  Receive Date: 20120103
  Receipt Date: 20111101
  Transmission Date: 20120608
  Serious: Yes (Other)
  Sender: FDA-Public Use
  Company Number: AE-2011-002097

PATIENT
  Age: 55 Year
  Sex: Female
  Weight: 74.8435 kg

DRUGS (6)
  1. PEG-INTRON [Concomitant]
  2. INCIVEK [Suspect]
     Dosage: 2250 MG (750 MG, 1 IN 8 HR), ORAL
     Route: 048
     Dates: start: 20110819
  3. CALCIUM WITH VITAMIN D (CALCIUM WITH VITAMIN D) [Concomitant]
  4. REBETOL [Concomitant]
  5. METFORMIN HCL [Concomitant]
  6. GLAUCOMA EYE DROPS (ANTIGLAUCOMA PREPARATIONS AND MIOTICS) [Concomitant]

REACTIONS (3)
  - ANAEMIA [None]
  - WHITE BLOOD CELL COUNT [None]
  - ASTHENIA [None]
